FAERS Safety Report 9468567 (Version 1)
Quarter: 2013Q3

REPORT INFORMATION
  Report Type: Spontaneous
  Country: GB (occurrence: GB)
  Receive Date: 20130821
  Receipt Date: 20130821
  Transmission Date: 20140515
  Serious: Yes (Other)
  Sender: FDA-Public Use
  Company Number: GB-GLAXOSMITHKLINE-B0915381A

PATIENT
  Age: 74 Year
  Sex: Female
  Weight: 68.5 kg

DRUGS (4)
  1. SERETIDE [Suspect]
     Indication: CHRONIC OBSTRUCTIVE PULMONARY DISEASE
     Route: 055
     Dates: start: 20130715, end: 20130726
  2. BENDROFLUMETHIAZIDE [Concomitant]
     Indication: HYPERTENSION
     Route: 048
     Dates: start: 20050729
  3. FELODIPINE [Concomitant]
     Indication: HYPERTENSION
     Route: 048
     Dates: start: 20101130
  4. VENTOLIN [Concomitant]
     Indication: ASTHMA
     Route: 055
     Dates: start: 20090901

REACTIONS (2)
  - Arthralgia [Recovering/Resolving]
  - Local swelling [Recovering/Resolving]
